FAERS Safety Report 4266953-X (Version None)
Quarter: 2004Q1

REPORT INFORMATION
  Report Type: 
  Country: None (occurrence: None)
  Receive Date: 20040107
  Receipt Date: 20031229
  Transmission Date: 20041129
  Serious: Yes (Hospitalization)
  Sender: FDA-Public Use
  Company Number: 03P-034-0243564-00

PATIENT
  Age: 37 Year
  Sex: Male

DRUGS (3)
  1. KALETRA [Suspect]
     Indication: HIV INFECTION
     Dosage: 3 CAPSULE, 2 IN 1 D, PER ORAL
     Route: 048
     Dates: start: 20030821, end: 20031203
  2. ZIDOVUDINE W/LAMIVUDINE [Concomitant]
  3. COTRIM [Concomitant]

REACTIONS (5)
  - CYANOSIS [None]
  - MYALGIA [None]
  - PARAESTHESIA [None]
  - PERIPHERAL ISCHAEMIA [None]
  - PULSE ABSENT [None]
